FAERS Safety Report 9023901 (Version 1)
Quarter: 2013Q1

REPORT INFORMATION
  Report Type: Spontaneous
  Country: US (occurrence: US)
  Receive Date: 20130121
  Receipt Date: 20130121
  Transmission Date: 20140127
  Serious: Yes (Other)
  Sender: FDA-Public Use
  Company Number: US-PFIZER INC-2013022716

PATIENT
  Age: 50 Year
  Sex: 0

DRUGS (1)
  1. NEURONTIN [Suspect]
     Indication: MALAISE
     Dosage: 800 MG, 1X/DAY
     Route: 048

REACTIONS (1)
  - Diabetes mellitus [Unknown]
